FAERS Safety Report 5997881-7 (Version None)
Quarter: 2008Q4

REPORT INFORMATION
  Report Type: 
  Country: None (occurrence: None)
  Receive Date: 20081212
  Receipt Date: 20081124
  Transmission Date: 20090506
  Serious: No
  Sender: FDA-Public Use
  Company Number: US-ABBOTT-08P-163-0489337-00

PATIENT
  Sex: Female
  Weight: 62.652 kg

DRUGS (4)
  1. HUMIRA [Suspect]
     Indication: CROHN'S DISEASE
     Route: 058
     Dates: start: 20070501, end: 20081101
  2. HUMIRA [Suspect]
     Indication: BEHCET'S SYNDROME
     Dates: start: 20071101
  3. CELECOXIB [Concomitant]
     Indication: ARTHRALGIA
  4. UNKNOWN NAUSEA MEDICATION [Concomitant]
     Indication: NAUSEA

REACTIONS (3)
  - INFLUENZA [None]
  - MUSCLE SPASMS [None]
  - PAIN [None]
